FAERS Safety Report 9760982 (Version 1)
Quarter: 2013Q4

REPORT INFORMATION
  Report Type: Spontaneous
  Country: US (occurrence: US)
  Receive Date: 20131216
  Receipt Date: 20131216
  Transmission Date: 20140711
  Serious: Yes (Other)
  Sender: FDA-Public Use
  Company Number: US-TEVA-450506USA

PATIENT
  Age: 29 Year
  Sex: Male

DRUGS (1)
  1. METHOTREXATE [Suspect]
     Indication: PSORIASIS
     Dosage: SPLIT TEST DOSAGE OF METHOTREXATE: 2.5MG FOLLOWED BY 2.5MG 12H LATER
     Route: 065

REACTIONS (1)
  - Dermatitis bullous [Recovering/Resolving]
